FAERS Safety Report 5952835-1 (Version None)
Quarter: 2008Q4

REPORT INFORMATION
  Report Type: 
  Country: None (occurrence: None)
  Receive Date: 20081114
  Receipt Date: 20081013
  Transmission Date: 20090506
  Serious: Yes (Other)
  Sender: FDA-Public Use
  Company Number: US-WYE-H06681008

PATIENT
  Sex: Male

DRUGS (2)
  1. PRISTIQ [Suspect]
     Indication: MAJOR DEPRESSION
     Route: 048
     Dates: start: 20080801, end: 20081005
  2. ATENOLOL [Suspect]
     Indication: HYPERTENSION
     Dosage: UNSPECIFIED DAILY DOSE
     Dates: start: 20060101

REACTIONS (1)
  - PARASYSTOLE [None]
